FAERS Safety Report 8954903 (Version 2)
Quarter: 2013Q1

REPORT INFORMATION
  Report Type: Spontaneous
  Country: US (occurrence: US)
  Receive Date: 20121207
  Receipt Date: 20130213
  Transmission Date: 20140127
  Serious: Yes (Other)
  Sender: FDA-Public Use
  Company Number: US-PFIZER INC-2012304970

PATIENT
  Age: 56 Year
  Sex: Male
  Weight: 85.26 kg

DRUGS (4)
  1. VIAGRA [Suspect]
     Indication: ERECTILE DYSFUNCTION
     Dosage: UNK, AS NEEDED
     Dates: start: 2004, end: 2009
  2. JANUMET XR [Concomitant]
     Indication: DIABETES MELLITUS
     Dosage: 5100 MG, 2X/DAY
  3. CARVEDILOL [Concomitant]
     Dosage: 25 MG, 2X/DAY
  4. LIPITOR [Concomitant]
     Indication: BLOOD CHOLESTEROL ABNORMAL
     Dosage: 10 MG, DAILY

REACTIONS (2)
  - Cardiac failure congestive [Unknown]
  - Drug ineffective [Unknown]
